FAERS Safety Report 10597512 (Version 1)
Quarter: 2014Q4

REPORT INFORMATION
  Report Type: Spontaneous
  Country: US (occurrence: None)
  Receive Date: 20141120
  Receipt Date: 20141120
  Transmission Date: 20150529
  Serious: No
  Sender: FDA-Public Use
  Company Number: None

PATIENT
  Age: 20 Year
  Sex: Female

DRUGS (1)
  1. CIPROFLOXACIN. [Suspect]
     Active Substance: CIPROFLOXACIN
     Route: 042
     Dates: start: 20140625, end: 20140625

REACTIONS (3)
  - Injection site erythema [None]
  - Injection site pain [None]
  - Pruritus [None]

NARRATIVE: CASE EVENT DATE: 20140625
